FAERS Safety Report 12416896 (Version 1)
Quarter: 2016Q2

REPORT INFORMATION
  Report Type: Spontaneous
  Country: US (occurrence: US)
  Receive Date: 20160530
  Receipt Date: 20160530
  Transmission Date: 20160815
  Serious: Yes (Other)
  Sender: FDA-Public Use
  Company Number: US-PFIZER INC-2016275266

PATIENT
  Age: 43 Year
  Sex: Female

DRUGS (1)
  1. VANCOMYCIN HCL [Suspect]
     Active Substance: VANCOMYCIN HYDROCHLORIDE
     Indication: STAPHYLOCOCCAL INFECTION
     Dosage: 1 GRAM VANCOMYCIN IN 250 ML OF 5% DEXTROSE SOLUTION WAS INFUSED AT A RATE OF 250 ML/HOUR FOR 1 HOUR

REACTIONS (2)
  - Cardiac arrest [Recovered/Resolved]
  - Respiratory arrest [Recovered/Resolved]
